FAERS Safety Report 7987444-6 (Version None)
Quarter: 2011Q4

REPORT INFORMATION
  Report Type: 
  Country: None (occurrence: None)
  Receive Date: 20111216
  Receipt Date: 20111027
  Transmission Date: 20120403
  Serious: No
  Sender: FDA-Public Use
  Company Number: US-BRISTOL-MYERS SQUIBB COMPANY-16202418

PATIENT
  Age: 16 Year
  Sex: Female
  Weight: 59 kg

DRUGS (1)
  1. ABILIFY [Suspect]
     Indication: TIC
     Route: 048
     Dates: start: 20111026

REACTIONS (4)
  - NAUSEA [None]
  - DIARRHOEA [None]
  - CHILLS [None]
  - ABDOMINAL PAIN UPPER [None]
